FAERS Safety Report 4395589-5 (Version None)
Quarter: 2004Q3

REPORT INFORMATION
  Report Type: 
  Country: None (occurrence: None)
  Receive Date: 20040707
  Receipt Date: 20040624
  Transmission Date: 20050211
  Serious: No
  Sender: FDA-Public Use
  Company Number: 04H-087-0264984-00

PATIENT
  Sex: 0

DRUGS (8)
  1. MORPHINE SULFATE INJ [Suspect]
     Indication: ANALGESIC EFFECT
     Dosage: 2-3 MG, ONCE, EPIDURAL; 15-30 MIN. BEFORE  END
     Route: 008
  2. ATROPINE HYDROXYZINE [Concomitant]
  3. THIOPENTAL SODIUM [Concomitant]
  4. NITROUS OXIDE [Concomitant]
  5. OXYGEN [Concomitant]
  6. ISOFLURANE [Concomitant]
  7. LIDOCAINE [Concomitant]
  8. SODIUM CHLORIDE INJ [Concomitant]

REACTIONS (1)
  - HYPOTENSION [None]
